FAERS Safety Report 4870132-2 (Version None)
Quarter: 2005Q4

REPORT INFORMATION
  Report Type: 
  Country: None (occurrence: None)
  Receive Date: 20051229
  Receipt Date: 20051229
  Transmission Date: 20060501
  Serious: No
  Sender: FDA-Public Use
  Company Number: None

PATIENT
  Age: 86 Year
  Sex: Male

DRUGS (1)
  1. NORTRIPTYLINE HCL [Suspect]
     Indication: NEURALGIA
     Dosage: 75 MG PO QHS
     Route: 048

REACTIONS (1)
  - ANURIA [None]
